FAERS Safety Report 21232605 (Version 7)
Quarter: 2024Q4

REPORT INFORMATION
  Report Type: Report from Study
  Country: GB (occurrence: GB)
  Receive Date: 20220819
  Receipt Date: 20241107
  Transmission Date: 20250115
  Serious: Yes (Hospitalization, Other)
  Sender: ROCHE
  Company Number: GB-ROCHE-2636571

PATIENT
  Age: 66 Year
  Sex: Female

DRUGS (22)
  1. TOCILIZUMAB [Suspect]
     Active Substance: TOCILIZUMAB
     Indication: Rheumatoid arthritis
     Route: 058
     Dates: start: 20200520
  2. TOCILIZUMAB [Suspect]
     Active Substance: TOCILIZUMAB
     Route: 058
     Dates: start: 20200520
  3. TOCILIZUMAB [Suspect]
     Active Substance: TOCILIZUMAB
     Route: 058
     Dates: start: 202205
  4. TOCILIZUMAB [Suspect]
     Active Substance: TOCILIZUMAB
     Route: 058
     Dates: start: 20200720
  5. TOCILIZUMAB [Suspect]
     Active Substance: TOCILIZUMAB
     Route: 058
     Dates: start: 20200520
  6. ALBUTEROL [Concomitant]
     Active Substance: ALBUTEROL
  7. LAMOTRIGINE [Concomitant]
     Active Substance: LAMOTRIGINE
  8. BENZYDAMINE [Concomitant]
     Active Substance: BENZYDAMINE
  9. PREDNISOLONE [Concomitant]
     Active Substance: PREDNISOLONE
  10. SERTRALINE [Concomitant]
     Active Substance: SERTRALINE HYDROCHLORIDE
  11. QUETIAPINE [Concomitant]
     Active Substance: QUETIAPINE
  12. MICONAZOLE [Concomitant]
     Active Substance: MICONAZOLE
  13. CLINITAS [Concomitant]
  14. ACETAMINOPHEN [Concomitant]
     Active Substance: ACETAMINOPHEN
  15. DOXYCYCLINE [Concomitant]
     Active Substance: DOXYCYCLINE
  16. AZITHROMYCIN [Concomitant]
     Active Substance: AZITHROMYCIN
  17. NACSYS [Concomitant]
  18. CARBOCYSTEINE [Concomitant]
     Active Substance: CARBOCYSTEINE
  19. MIRABEGRON [Concomitant]
     Active Substance: MIRABEGRON
  20. SODIUM CHLORIDE [Concomitant]
     Active Substance: SODIUM CHLORIDE
  21. ESOMEPRAZOLE [Concomitant]
     Active Substance: ESOMEPRAZOLE
  22. DOXYCYCLINE [Concomitant]
     Active Substance: DOXYCYCLINE

REACTIONS (14)
  - Pneumonia [Unknown]
  - Dyspnoea [Unknown]
  - Malaise [Unknown]
  - Blood iron decreased [Unknown]
  - Blood sodium decreased [Unknown]
  - Hypersensitivity [Unknown]
  - Pain [Unknown]
  - Drug ineffective [Unknown]
  - Lung disorder [Unknown]
  - Blood sodium decreased [Unknown]
  - Lung disorder [Unknown]
  - COVID-19 [Unknown]
  - Malaise [Unknown]
  - Pneumonia [Unknown]

NARRATIVE: CASE EVENT DATE: 20200601
